FAERS Safety Report 9880481 (Version 1)
Quarter: 2014Q1

REPORT INFORMATION
  Report Type: Spontaneous
  Country: DE (occurrence: None)
  Receive Date: 20140205
  Receipt Date: 20140205
  Transmission Date: 20141002
  Serious: Yes (Hospitalization)
  Sender: FDA-Public Use
  Company Number: DSM-2013-00916

PATIENT
  Age: 73 Year
  Sex: Female
  Weight: 63 kg

DRUGS (10)
  1. OLMESARTAN [Suspect]
     Indication: HYPERTENSION
     Dosage: FOR YEARS.
     Route: 048
     Dates: end: 20130816
  2. VALSARTAN [Suspect]
     Indication: HYPERTENSION
     Route: 048
     Dates: start: 20130823, end: 20130904
  3. RAMIPRIL [Suspect]
     Indication: HYPERTENSION
     Route: 048
     Dates: start: 20130906, end: 20130908
  4. METFORMIN (METFORMIN) [Concomitant]
  5. PANTOPRAZOL (PANTOPRAZOLE) [Concomitant]
  6. BISOPROLOL (BISOPROLOL) [Concomitant]
  7. VOTUM POLUS (HYDROCHLOROTHIAZIDE, OLMESARTAN MEDOXOMIL) [Concomitant]
  8. COPIFEO (LERCANIDIPINE HYDROCHLORIDE) [Concomitant]
  9. SIMVASTATIN (SIMVASTATIN) [Concomitant]
  10. ALLOPURINOL (ALLOPURINOL) [Concomitant]

REACTIONS (10)
  - Diarrhoea [None]
  - Hypokalaemia [None]
  - Renal failure acute [None]
  - Diverticulum [None]
  - Hepatic steatosis [None]
  - Cholelithiasis [None]
  - Malabsorption [None]
  - Enteritis [None]
  - Duodenitis [None]
  - Normochromic normocytic anaemia [None]
